FAERS Safety Report 9390824 (Version 2)
Quarter: 2013Q3

REPORT INFORMATION
  Report Type: Spontaneous
  Country: AT (occurrence: AT)
  Receive Date: 20130709
  Receipt Date: 20130722
  Transmission Date: 20140515
  Serious: Yes (Hospitalization)
  Sender: FDA-Public Use
  Company Number: AT-CELGENEUS-009-POMAL-13064210

PATIENT
  Age: 72 Year
  Sex: Male
  Weight: 75 kg

DRUGS (9)
  1. POMALYST [Suspect]
     Indication: PLASMA CELL MYELOMA
     Route: 048
     Dates: start: 20130607, end: 20130620
  2. FENTANYL [Concomitant]
     Indication: PAIN
     Route: 065
  3. PANTOLOC [Concomitant]
     Indication: PROPHYLAXIS
     Route: 065
  4. AMLODIPINE [Concomitant]
     Indication: ARTERIAL DISORDER
     Route: 065
  5. SEDACORON [Concomitant]
     Indication: ATRIAL FIBRILLATION
     Route: 065
  6. SEROQUEL [Concomitant]
     Indication: HALLUCINATION
     Route: 065
  7. MAXI KALZ [Concomitant]
     Indication: CALCIUM DEFICIENCY
     Route: 065
  8. DIAMICRON [Concomitant]
     Indication: TYPE 2 DIABETES MELLITUS
     Route: 065
  9. FORTECORTIN [Concomitant]
     Indication: PLASMA CELL MYELOMA
     Route: 065

REACTIONS (2)
  - Dementia [Not Recovered/Not Resolved]
  - Musculoskeletal pain [Recovered/Resolved with Sequelae]
